FAERS Safety Report 6214419-X (Version None)
Quarter: 2009Q2

REPORT INFORMATION
  Report Type: 
  Country: None (occurrence: None)
  Receive Date: 20090604
  Receipt Date: 20090529
  Transmission Date: 20091009
  Serious: Yes (Other)
  Sender: FDA-Public Use
  Company Number: US-TEVA-150409USA

PATIENT
  Age: 48 Year
  Sex: Female

DRUGS (3)
  1. CLOTRIMAZOLE TOPICAL SOLN 1% [Suspect]
     Indication: OTITIS EXTERNA FUNGAL
     Route: 001
     Dates: start: 20060101, end: 20061101
  2. CLOTRIMAZOLE TOPICAL SOLN 1% [Concomitant]
  3. STEROIDS (NOS) [Concomitant]
     Indication: ADDISON'S DISEASE

REACTIONS (11)
  - AURICULAR SWELLING [None]
  - BLISTER [None]
  - EAR CONGESTION [None]
  - EAR HAEMORRHAGE [None]
  - EAR PAIN [None]
  - HAEMORRHAGE [None]
  - HEADACHE [None]
  - HEARING IMPAIRED [None]
  - IMPAIRED HEALING [None]
  - NAUSEA [None]
  - SCAB [None]
